FAERS Safety Report 4921525-6 (Version None)
Quarter: 2006Q1

REPORT INFORMATION
  Report Type: 
  Country: None (occurrence: None)
  Receive Date: 20060221
  Receipt Date: 20060203
  Transmission Date: 20060701
  Serious: Yes (Other)
  Sender: FDA-Public Use
  Company Number: DSA_27659_2006

PATIENT
  Age: 86 Year
  Sex: Male

DRUGS (8)
  1. RENIVACE [Suspect]
     Dosage: DF PO
     Route: 048
  2. CARBAMAZEPINE [Suspect]
     Indication: ABNORMAL BEHAVIOUR
     Dosage: 300 MG PO
     Route: 048
  3. CARBAMAZEPINE [Suspect]
     Indication: IRRITABILITY
     Dosage: 300 MG PO
     Route: 048
  4. FUROSEMIDE [Suspect]
     Dosage: DF PO
     Route: 048
  5. WARFARIN POTASSIUM [Suspect]
     Dosage: DF PO
     Route: 048
  6. FAMOTIDINE [Suspect]
     Dosage: DF PO
     Route: 048
  7. TOCOPHEROL CONCENTRATE CAP [Suspect]
     Dosage: DF PO
     Route: 048
  8. REBAMIPIDE [Suspect]
     Dosage: DF PO
     Route: 048

REACTIONS (16)
  - ABNORMAL BEHAVIOUR [None]
  - ANTICONVULSANT DRUG LEVEL INCREASED [None]
  - ATRIAL FIBRILLATION [None]
  - BRADYCARDIA [None]
  - COGNITIVE DISORDER [None]
  - DEPRESSED LEVEL OF CONSCIOUSNESS [None]
  - DISEASE RECURRENCE [None]
  - DRUG INTERACTION [None]
  - DRUG INTERACTION POTENTIATION [None]
  - DRUG TOXICITY [None]
  - HEPATIC CONGESTION [None]
  - HEPATIC FUNCTION ABNORMAL [None]
  - HYPERKALAEMIA [None]
  - IRRITABILITY [None]
  - MUSCLE SPASMS [None]
  - PYREXIA [None]
